FAERS Safety Report 11987980 (Version 1)
Quarter: 2016Q1

REPORT INFORMATION
  Report Type: Report from Study
  Country: ES (occurrence: ES)
  Receive Date: 20160202
  Receipt Date: 20160202
  Transmission Date: 20160526
  Serious: Yes (Other)
  Sender: FDA-Public Use
  Company Number: ES-EMD SERONO-8064721

PATIENT
  Age: 14 Year
  Sex: Male

DRUGS (1)
  1. SAIZEN [Suspect]
     Active Substance: SOMATROPIN
     Indication: GROWTH HORMONE DEFICIENCY
     Dosage: 2 (UNSPECIFIED UNITS)
     Route: 058
     Dates: start: 20151116, end: 20160115

REACTIONS (3)
  - Papilloedema [Unknown]
  - Thrombosis [Unknown]
  - Overweight [Unknown]

NARRATIVE: CASE EVENT DATE: 20160115
